FAERS Safety Report 9702942 (Version 1)
Quarter: 2013Q4

REPORT INFORMATION
  Report Type: Spontaneous
  Country: US (occurrence: US)
  Receive Date: 20131121
  Receipt Date: 20131121
  Transmission Date: 20140711
  Serious: Yes (Other)
  Sender: FDA-Public Use
  Company Number: PHEH2013US024344

PATIENT
  Sex: Female

DRUGS (5)
  1. EXELON PATCH [Suspect]
     Indication: DEMENTIA
     Dosage: 9.5 MG, UNK
     Route: 062
  2. EXELON PATCH [Suspect]
     Dosage: 13.3 MG, DAILY
     Route: 062
  3. ASA [Concomitant]
     Indication: PROPHYLAXIS
     Dosage: 81 MG, QD
  4. OTHER ANTIHYPERTENSIVES [Concomitant]
     Indication: HYPERTENSION
     Dosage: UNK UKN, UNK
  5. WELCHOL [Concomitant]
     Dosage: UNK UKN, UNK

REACTIONS (4)
  - Body temperature decreased [Unknown]
  - Nightmare [Unknown]
  - Vomiting [Unknown]
  - Diarrhoea [Unknown]
